FAERS Safety Report 7805557-6 (Version None)
Quarter: 2011Q4

REPORT INFORMATION
  Report Type: 
  Country: None (occurrence: None)
  Receive Date: 20111010
  Receipt Date: 20110930
  Transmission Date: 20120403
  Serious: Yes (Hospitalization)
  Sender: FDA-Public Use
  Company Number: US-MERCK-1108USA01131

PATIENT
  Age: 61 Year
  Sex: Female

DRUGS (2)
  1. VERAPAMIL [Concomitant]
     Indication: HYPERTENSION
     Route: 065
  2. FOSAMAX [Suspect]
     Indication: OSTEOPOROSIS
     Route: 048
     Dates: start: 20000901, end: 20100101

REACTIONS (13)
  - CYSTITIS [None]
  - DRUG HYPERSENSITIVITY [None]
  - TYPE 2 DIABETES MELLITUS [None]
  - CALCIUM DEFICIENCY [None]
  - ANXIETY [None]
  - OEDEMA PERIPHERAL [None]
  - DEPRESSION [None]
  - URINARY TRACT INFECTION [None]
  - DENTAL CARIES [None]
  - FEMUR FRACTURE [None]
  - CARDIAC MURMUR [None]
  - HYPERLIPIDAEMIA [None]
  - ALLERGY TO METALS [None]
